FAERS Safety Report 10405324 (Version 4)
Quarter: 2014Q4

REPORT INFORMATION
  Report Type: Report from Study
  Country: BE (occurrence: BE)
  Receive Date: 20140825
  Receipt Date: 20141031
  Transmission Date: 20150528
  Serious: Yes (Hospitalization)
  Sender: FDA-Public Use
  Company Number: BE-BAYER-2014-108523

PATIENT
  Age: 51 Year
  Sex: Female
  Weight: 55 kg

DRUGS (5)
  1. REGORAFENIB [Suspect]
     Active Substance: REGORAFENIB
     Indication: COLORECTAL CANCER
     Dosage: 160 MG, QD (ONCE A DAY FOR 3 WEEKS EVERY 4 WEEKS)
     Route: 048
     Dates: start: 20140612
  2. FRAXIPARINE [Concomitant]
     Active Substance: NADROPARIN CALCIUM
     Indication: THROMBOSIS PROPHYLAXIS
     Dosage: 0.4 ML, QD
     Route: 058
     Dates: start: 20140619
  3. AUGMENTIN [Concomitant]
     Active Substance: AMOXICILLIN\CLAVULANATE POTASSIUM
     Indication: INFECTION PROPHYLAXIS
     Dosage: 4G/DAY
     Route: 042
     Dates: start: 20140619, end: 20140626
  4. ASPIRIN [ACETYLSALICYLIC ACID] [Concomitant]
     Indication: PROPHYLAXIS
     Dosage: DAILY DOSE 80 MG
  5. PANTOPRAZOLE [Concomitant]
     Active Substance: PANTOPRAZOLE SODIUM
     Indication: PAIN PROPHYLAXIS
     Dosage: 80 MG, QD
     Route: 048
     Dates: start: 20140619, end: 201407

REACTIONS (2)
  - Ovarian haemorrhage [Recovered/Resolved]
  - Metastases to ovary [Recovered/Resolved]

NARRATIVE: CASE EVENT DATE: 20140613
